FAERS Safety Report 20751339 (Version 1)
Quarter: 2022Q2

REPORT INFORMATION
  Report Type: Spontaneous
  Country: US (occurrence: US)
  Receive Date: 20220426
  Receipt Date: 20220426
  Transmission Date: 20220721
  Serious: No
  Sender: FDA-Public Use
  Company Number: US-PFIZER INC-202100975663

PATIENT
  Age: 70 Year
  Sex: Female

DRUGS (2)
  1. LYRICA CR [Suspect]
     Active Substance: PREGABALIN
     Dosage: 330 MG
  2. LYRICA CR [Suspect]
     Active Substance: PREGABALIN
     Dosage: 75 MG

REACTIONS (2)
  - Drug ineffective [Unknown]
  - Pain [Unknown]
